FAERS Safety Report 8851282 (Version 2)
Quarter: 2012Q4

REPORT INFORMATION
  Report Type: Report from Study
  Country: DE (occurrence: DE)
  Receive Date: 20121019
  Receipt Date: 20121205
  Transmission Date: 20130627
  Serious: Yes (Death, Hospitalization)
  Sender: FDA-Public Use
  Company Number: DE-CELGENEUS-062-50794-12041851

PATIENT
  Age: 78 Year
  Sex: Male
  Weight: 64 kg

DRUGS (3)
  1. VIDAZA [Suspect]
     Indication: MYELODYSPLASIA
     Dosage: 75 milligram/sq. meter
     Route: 058
     Dates: start: 20120314, end: 20120322
  2. RED BLOOD CELLS [Concomitant]
     Indication: DRUG USE FOR UNKNOWN INDICATION
     Route: 041
  3. PLATELETS [Concomitant]
     Indication: DRUG USE FOR UNKNOWN INDICATION
     Route: 041

REACTIONS (3)
  - Escherichia sepsis [Fatal]
  - Pneumonia [Fatal]
  - Fatigue [Recovered/Resolved]
